FAERS Safety Report 24031289 (Version 1)
Quarter: 2024Q2

REPORT INFORMATION
  Report Type: Spontaneous
  Country: US (occurrence: US)
  Receive Date: 20240629
  Receipt Date: 20240629
  Transmission Date: 20240716
  Serious: Yes (Hospitalization)
  Sender: FDA-Public Use
  Company Number: US-ASPIRO-ASP2024US01940

PATIENT
  Age: 38 Year
  Sex: Male

DRUGS (2)
  1. ACETAMINOPHEN [Suspect]
     Active Substance: ACETAMINOPHEN
     Indication: Pain
     Dosage: LARGE, UNKNOWN QUANTITIES
     Route: 065
  2. IBUPROFEN [Suspect]
     Active Substance: IBUPROFEN
     Indication: Pain
     Dosage: LARGE, UNKNOWN QUANTITIES
     Route: 065

REACTIONS (5)
  - Bacteraemia [Recovered/Resolved]
  - Parvimonas micra infection [Recovered/Resolved]
  - Liver injury [Recovering/Resolving]
  - Renal tubular necrosis [Recovering/Resolving]
  - Intentional product use issue [Unknown]
